FAERS Safety Report 8019938-1 (Version None)
Quarter: 2012Q1

REPORT INFORMATION
  Report Type: 
  Country: None (occurrence: None)
  Receive Date: 20120103
  Receipt Date: 20111222
  Transmission Date: 20120608
  Serious: No
  Sender: FDA-Public Use
  Company Number: GB-JNJFOC-20111210474

PATIENT
  Age: 21 Year
  Sex: Female

DRUGS (1)
  1. SIMPONI [Suspect]
     Indication: PRODUCT USED FOR UNKNOWN INDICATION
     Route: 058
     Dates: start: 20111116

REACTIONS (3)
  - OROPHARYNGEAL PAIN [None]
  - DYSPNOEA [None]
  - IMMEDIATE POST-INJECTION REACTION [None]
